FAERS Safety Report 7096365-5 (Version None)
Quarter: 2010Q4

REPORT INFORMATION
  Report Type: 
  Country: None (occurrence: None)
  Receive Date: 20101111
  Receipt Date: 20090902
  Transmission Date: 20110411
  Serious: No
  Sender: FDA-Public Use
  Company Number: US-KINGPHARMUSA00001-K200901098

PATIENT
  Age: 72 Year
  Sex: Male
  Weight: 113.38 kg

DRUGS (3)
  1. AVINZA [Suspect]
     Indication: PAIN
     Dosage: 240 MG, SINGLE
     Route: 048
     Dates: start: 20090902, end: 20090902
  2. AVINZA [Suspect]
     Indication: BACK DISORDER
     Dosage: 120 MG, QD
     Route: 048
     Dates: start: 20080101
  3. PERCOCET [Concomitant]

REACTIONS (2)
  - ACCIDENTAL OVERDOSE [None]
  - NO ADVERSE EVENT [None]
